FAERS Safety Report 8106834-4 (Version None)
Quarter: 2012Q1

REPORT INFORMATION
  Report Type: 
  Country: None (occurrence: None)
  Receive Date: 20120202
  Receipt Date: 20120126
  Transmission Date: 20120608
  Serious: Yes (Death)
  Sender: FDA-Public Use
  Company Number: US-ASTELLAS-2012US000766

PATIENT
  Sex: Male

DRUGS (6)
  1. SPIRIVA [Concomitant]
     Indication: PRODUCT USED FOR UNKNOWN INDICATION
     Dosage: 2 DF, UID/QD
     Route: 065
  2. TARCEVA [Suspect]
     Indication: LUNG CANCER METASTATIC
     Dosage: 150 MG, UID/QD
     Route: 048
     Dates: start: 20100227
  3. SINGULAIR [Concomitant]
     Indication: PRODUCT USED FOR UNKNOWN INDICATION
     Dosage: 10 MG, UNKNOWN/D
     Route: 065
  4. PROVENTIL [Concomitant]
     Indication: PRODUCT USED FOR UNKNOWN INDICATION
     Dosage: 2 DF, PRN
     Route: 065
  5. ASPIRIN [Concomitant]
     Indication: PRODUCT USED FOR UNKNOWN INDICATION
     Dosage: 81 MG, UID/QD
     Route: 065
  6. DUONEB [Concomitant]
     Indication: PRODUCT USED FOR UNKNOWN INDICATION
     Dosage: 1 DF, Q 4 DAYS
     Route: 065

REACTIONS (11)
  - CACHEXIA [None]
  - DECREASED APPETITE [None]
  - CONSTIPATION [None]
  - ARCUS LIPOIDES [None]
  - TOOTH LOSS [None]
  - LUNG CANCER METASTATIC [None]
  - INGUINAL HERNIA [None]
  - WEIGHT DECREASED [None]
  - DYSPNOEA EXERTIONAL [None]
  - HYPOACUSIS [None]
  - CARDIO-RESPIRATORY ARREST [None]
